FAERS Safety Report 22398853 (Version 1)
Quarter: 2023Q2

REPORT INFORMATION
  Report Type: Spontaneous
  Country: GB (occurrence: None)
  Receive Date: 20230602
  Receipt Date: 20230602
  Transmission Date: 20230721
  Serious: Yes (Other)
  Sender: FDA-Public Use
  Company Number: 2023A122927

PATIENT
  Age: 61 Year
  Sex: Male
  Weight: 71 kg

DRUGS (8)
  1. ROSUVASTATIN [Suspect]
     Active Substance: ROSUVASTATIN
     Dosage: AT NIGHT
     Dates: start: 20230512
  2. AMLODIPINE [Concomitant]
     Active Substance: AMLODIPINE BESYLATE
     Dates: start: 20220209
  3. ATORVASTATIN [Concomitant]
     Active Substance: ATORVASTATIN
     Dates: start: 20230418
  4. DIAZEPAM [Concomitant]
     Active Substance: DIAZEPAM
     Dates: start: 20220912
  5. LORAZEPAM [Concomitant]
     Active Substance: LORAZEPAM
     Dates: start: 20220912
  6. OMEPRAZOLE [Concomitant]
     Active Substance: OMEPRAZOLE
     Dates: start: 20220912
  7. CALCIUM CARBONATE\SODIUM ALGINATE\SODIUM BICARBONATE [Concomitant]
     Active Substance: CALCIUM CARBONATE\SODIUM ALGINATE\SODIUM BICARBONATE
     Dosage: 10ML-20ML 4 TIMES/DAY AFTER MEALS AND AT BEDTIME
     Dates: start: 20220209
  8. STEXEROL-D3 [Concomitant]
     Dates: start: 20220905

REACTIONS (2)
  - Oropharyngeal pain [Recovered/Resolved]
  - Oropharyngeal discomfort [Unknown]
